FAERS Safety Report 20826530 (Version 10)
Quarter: 2024Q3

REPORT INFORMATION
  Report Type: Report from Study
  Country: CO (occurrence: CO)
  Receive Date: 20220513
  Receipt Date: 20240906
  Transmission Date: 20241017
  Serious: Yes (Hospitalization, Other)
  Sender: TAKEDA
  Company Number: CO-TAKEDA-2022TUS027641

PATIENT
  Age: 45 Year
  Sex: Male
  Weight: 57 kg

DRUGS (2)
  1. VEDOLIZUMAB [Suspect]
     Active Substance: VEDOLIZUMAB
     Indication: Crohn^s disease
     Dosage: 300 MILLIGRAM
     Route: 042
     Dates: start: 20220323, end: 20220407
  2. VEDOLIZUMAB [Suspect]
     Active Substance: VEDOLIZUMAB
     Indication: Colitis ulcerative
     Dosage: 300 MILLIGRAM
     Route: 042
     Dates: start: 20230424, end: 20240704

REACTIONS (15)
  - Rectal haemorrhage [Unknown]
  - Abdominal pain upper [Recovering/Resolving]
  - Procedural pain [Unknown]
  - Anal haemorrhage [Unknown]
  - Post procedural discomfort [Unknown]
  - Abdominal pain [Unknown]
  - Abdominal distension [Recovering/Resolving]
  - Infected fistula [Not Recovered/Not Resolved]
  - Tuberculosis [Unknown]
  - Back pain [Not Recovered/Not Resolved]
  - Arthralgia [Not Recovered/Not Resolved]
  - Weight decreased [Unknown]
  - Bone pain [Unknown]
  - Weight increased [Unknown]
  - Pain in extremity [Not Recovered/Not Resolved]

NARRATIVE: CASE EVENT DATE: 20220429
